FAERS Safety Report 25770934 (Version 1)
Quarter: 2025Q3

REPORT INFORMATION
  Report Type: 
  Country: CN (occurrence: CN)
  Receive Date: 20250908
  Receipt Date: 20250908
  Transmission Date: 20251020
  Serious: Yes (Hospitalization)
  Sender: JIANGSU HANSOH PHARMACEUTICAL GROUP CO., LTD.
  Company Number: CN-Hansoh-20252190016525

PATIENT
  Age: 68 Year
  Sex: Male
  Weight: 53.9 kg

DRUGS (2)
  1. AZACITIDINE [Suspect]
     Active Substance: AZACITIDINE
     Indication: Acute myeloid leukaemia
     Dosage: 100 MG, QD
     Route: 058
     Dates: start: 20250808, end: 20250814
  2. Hydroxycarbamide Tablet [Concomitant]
     Indication: Acute myeloid leukaemia
     Dosage: 1 G, TID
     Route: 048
     Dates: start: 20250807, end: 20250809

REACTIONS (3)
  - Myelosuppression [Not Recovered/Not Resolved]
  - Epistaxis [Not Recovered/Not Resolved]
  - Pyrexia [Not Recovered/Not Resolved]

NARRATIVE: CASE EVENT DATE: 20250813
